FAERS Safety Report 19306639 (Version 4)
Quarter: 2022Q1

REPORT INFORMATION
  Report Type: Report from Study
  Country: CN (occurrence: CN)
  Receive Date: 20210525
  Receipt Date: 20220114
  Transmission Date: 20220423
  Serious: Yes (Life-Threatening, Hospitalization)
  Sender: FDA-Public Use
  Company Number: CN-OTSUKA-2021_016782

PATIENT
  Age: 25 Year
  Sex: Male
  Weight: 59 kg

DRUGS (6)
  1. PONATINIB [Suspect]
     Active Substance: PONATINIB
     Indication: Chronic myeloid leukaemia transformation
     Dosage: 45 MILLIGRAM, QD
     Route: 048
     Dates: start: 20201104, end: 20201130
  2. PONATINIB [Suspect]
     Active Substance: PONATINIB
     Dosage: 45 MILLIGRAM, QD
     Route: 048
     Dates: start: 20201217, end: 20210412
  3. PONATINIB [Suspect]
     Active Substance: PONATINIB
     Dosage: 45 MILLIGRAM, QD
     Route: 048
     Dates: start: 20210511, end: 20210512
  4. IBUPROFEN [Concomitant]
     Active Substance: IBUPROFEN
     Indication: Pyrexia
     Dosage: 10 MILLILITER
     Route: 048
     Dates: start: 20210408
  5. ACYCLOVIR [Concomitant]
     Active Substance: ACYCLOVIR
     Indication: Pyrexia
     Dosage: 0.4 GRAM, QID
     Route: 048
     Dates: start: 20210412
  6. ERYTHROMYCIN [Concomitant]
     Active Substance: ERYTHROMYCIN
     Indication: Rash
     Dosage: UNK
     Route: 065
     Dates: start: 20210412

REACTIONS (1)
  - Gastrointestinal haemorrhage [Recovered/Resolved]

NARRATIVE: CASE EVENT DATE: 20210513
